FAERS Safety Report 4751650-4 (Version None)
Quarter: 2005Q3

REPORT INFORMATION
  Report Type: 
  Country: None (occurrence: None)
  Receive Date: 20050822
  Receipt Date: 20050815
  Transmission Date: 20060218
  Serious: Yes (Other)
  Sender: FDA-Public Use
  Company Number: 200512561GDS

PATIENT
  Age: 43 Year
  Sex: Female

DRUGS (3)
  1. CIPROFLOXACIN [Suspect]
     Indication: ARTHROPOD BITE
     Dosage: UNK
  2. CEPHALEXIN [Suspect]
     Indication: ARTHROPOD BITE
     Dosage: UNK
  3. AMOXICILLIN CLAVULANATE (AMOXICILLIN W/CLAVULANIC ACID) [Suspect]
     Indication: ARTHROPOD BITE
     Dosage: UNK

REACTIONS (5)
  - CHOREA [None]
  - CONFUSIONAL STATE [None]
  - DISTURBANCE IN ATTENTION [None]
  - DYSKINESIA [None]
  - GRAND MAL CONVULSION [None]
